FAERS Safety Report 4350962-6 (Version None)
Quarter: 2004Q2

REPORT INFORMATION
  Report Type: 
  Country: None (occurrence: None)
  Receive Date: 20040428
  Receipt Date: 20040416
  Transmission Date: 20050107
  Serious: Yes (Hospitalization)
  Sender: FDA-Public Use
  Company Number: 001-0981-M0000552

PATIENT
  Age: 56 Year
  Sex: Female
  Weight: 103.8737 kg

DRUGS (11)
  1. ATORVASTATIN (ATORVASTATIN) [Suspect]
     Indication: CORONARY ARTERY DISEASE
     Dosage: 10 MG (DAILY), ORAL
     Route: 048
     Dates: start: 19981124, end: 19990118
  2. METOPROLOL SUCCINATE [Concomitant]
  3. ESTROGENIC SUBSTANCE [Concomitant]
  4. ASPIRIN [Concomitant]
  5. IPRATROPIUM BROMIDE [Concomitant]
  6. GLYCERYL TRINITRATE [Concomitant]
  7. ALBUTEROL SULFATE [Concomitant]
  8. TORSEMIDE [Concomitant]
  9. CELECOXIB [Concomitant]
  10. LOSARTAN POTASSIUM [Concomitant]
  11. ATORVASTATIN CALCIUM [Concomitant]

REACTIONS (1)
  - DEEP VEIN THROMBOSIS [None]
